FAERS Safety Report 4313068-8 (Version None)
Quarter: 2004Q1

REPORT INFORMATION
  Report Type: 
  Country: None (occurrence: None)
  Receive Date: 20040305
  Receipt Date: 20040305
  Transmission Date: 20041129
  Serious: Yes (Hospitalization)
  Sender: FDA-Public Use
  Company Number: None

PATIENT
  Age: 77 Year
  Sex: Male
  Weight: 81.4207 kg

DRUGS (13)
  1. CAPECITABINE 500 MG ROCHE [Suspect]
     Indication: RECTAL CANCER
     Dosage: 1500 MG BID ORAL
     Route: 048
     Dates: start: 20040127, end: 20040303
  2. CAPECITABINE 150 MG [Suspect]
     Indication: RECTAL CANCER
     Dosage: 150 MG QD ORAL
     Route: 048
     Dates: start: 20040127, end: 20040303
  3. RADIATION THERAPY [Concomitant]
  4. OXYCODONE AND ACETAMINOPHEN [Concomitant]
  5. BACTRIM [Concomitant]
  6. CITALOPRAM [Concomitant]
  7. METOPROLOL [Concomitant]
  8. SENNOSIDE [Concomitant]
  9. ASPIRIN [Concomitant]
  10. LISINOPRIL [Concomitant]
  11. DOCUSATE [Concomitant]
  12. MEGESTROL [Concomitant]
  13. TRAZODONE HCL [Concomitant]

REACTIONS (12)
  - ANOREXIA [None]
  - ARRHYTHMIA [None]
  - BLOOD CREATININE INCREASED [None]
  - DEHYDRATION [None]
  - DYSGEUSIA [None]
  - HYPERKALAEMIA [None]
  - HYPOTENSION [None]
  - MALNUTRITION [None]
  - REFUSAL OF TREATMENT BY PATIENT [None]
  - RENAL FAILURE ACUTE [None]
  - UPPER RESPIRATORY TRACT INFECTION [None]
  - WEIGHT DECREASED [None]
